FAERS Safety Report 18457452 (Version 1)
Quarter: 2020Q4

REPORT INFORMATION
  Report Type: Spontaneous
  Country: US (occurrence: US)
  Receive Date: 20201030
  Receipt Date: 20201030
  Transmission Date: 20210114
  Serious: No
  Sender: FDA-Public Use
  Company Number: US-BRISTOL-MYERS SQUIBB COMPANY-BMS-2020-090926

PATIENT

DRUGS (3)
  1. KENALOG-40 [Suspect]
     Active Substance: TRIAMCINOLONE ACETONIDE
     Dosage: 40MG/5ML
     Route: 065
  2. KENALOG-40 [Suspect]
     Active Substance: TRIAMCINOLONE ACETONIDE
     Indication: PRODUCT USED FOR UNKNOWN INDICATION
     Dosage: 40MG/1ML
     Route: 065
  3. KENALOG-40 [Suspect]
     Active Substance: TRIAMCINOLONE ACETONIDE
     Dosage: 10/5ML
     Route: 065

REACTIONS (1)
  - Product storage error [Unknown]
